FAERS Safety Report 25974409 (Version 1)
Quarter: 2025Q4

REPORT INFORMATION
  Report Type: Spontaneous
  Country: US (occurrence: US)
  Receive Date: 20251029
  Receipt Date: 20251029
  Transmission Date: 20260117
  Serious: No
  Sender: NOVARTIS
  Company Number: US-002147023-NVSC2025US161711

PATIENT
  Sex: Female

DRUGS (3)
  1. MEKINIST [Suspect]
     Active Substance: TRAMETINIB DIMETHYL SULFOXIDE
     Indication: Brain neoplasm malignant
     Dosage: 2 MG DAILY
     Route: 048
     Dates: start: 202509
  2. TAFINLAR [Concomitant]
     Active Substance: DABRAFENIB MESYLATE
     Indication: Brain neoplasm malignant
     Dosage: 75 MG DAILY FOR 3 DAYS
     Route: 048
     Dates: start: 202509
  3. TAFINLAR [Concomitant]
     Active Substance: DABRAFENIB MESYLATE
     Dosage: 75 MG, BID FOR 3 DAYS
     Route: 048

REACTIONS (2)
  - Rash [Unknown]
  - Erythema [Unknown]
